FAERS Safety Report 7759530-7 (Version None)
Quarter: 2011Q3

REPORT INFORMATION
  Report Type: 
  Country: None (occurrence: None)
  Receive Date: 20110919
  Receipt Date: 20110919
  Transmission Date: 20111222
  Serious: Yes (Death)
  Sender: FDA-Public Use
  Company Number: None

PATIENT
  Sex: Female
  Weight: 83.914 kg

DRUGS (3)
  1. EZETIMIBE [Concomitant]
     Indication: HYPERLIPIDAEMIA
     Dosage: 10 MG
     Route: 048
     Dates: start: 20031021, end: 20050414
  2. LANTUS [Suspect]
     Indication: DRUG TOLERANCE DECREASED
     Dosage: 36 UNITS
     Route: 058
     Dates: start: 20040206, end: 20071008
  3. LANTUS [Suspect]
     Indication: TYPE 2 DIABETES MELLITUS
     Dosage: 36 UNITS
     Route: 058
     Dates: start: 20040206, end: 20071008

REACTIONS (2)
  - PANCREATIC CARCINOMA [None]
  - DRUG TOLERANCE DECREASED [None]
